FAERS Safety Report 25584760 (Version 1)
Quarter: 2025Q3

REPORT INFORMATION
  Report Type: Spontaneous
  Country: US (occurrence: US)
  Receive Date: 20250721
  Receipt Date: 20250721
  Transmission Date: 20251020
  Serious: Yes (Other)
  Sender: BAXTER
  Company Number: US-BAXTER-2025BAX018449

PATIENT
  Age: 76 Year
  Sex: Female

DRUGS (1)
  1. NEXTERONE [Suspect]
     Active Substance: AMIODARONE HYDROCHLORIDE
     Route: 042

REACTIONS (5)
  - Acute hepatic failure [Unknown]
  - Hyperkalaemia [Unknown]
  - Hepatic enzyme increased [Recovered/Resolved]
  - Hypervolaemia [Unknown]
  - Shock [Unknown]
